FAERS Safety Report 8573074-4 (Version None)
Quarter: 2012Q2

REPORT INFORMATION
  Report Type: 
  Country: None (occurrence: None)
  Receive Date: 20120423
  Receipt Date: 20090515
  Transmission Date: 20120825
  Serious: Yes (Death)
  Sender: FDA-Public Use
  Company Number: PHEH2009US12192

PATIENT
  Age: 51 Year
  Sex: Female
  Weight: 59 kg

DRUGS (1)
  1. EXJADE [Suspect]
     Indication: BREAST CANCER
     Dosage: 1250 MG, QD, ORAL
     Route: 048

REACTIONS (1)
  - DISEASE PROGRESSION [None]
